FAERS Safety Report 4641387-4 (Version None)
Quarter: 2005Q2

REPORT INFORMATION
  Report Type: 
  Country: None (occurrence: None)
  Receive Date: 20050421
  Receipt Date: 20050408
  Transmission Date: 20051028
  Serious: Yes (Other)
  Sender: FDA-Public Use
  Company Number: US-GLAXOSMITHKLINE-A0553341A

PATIENT
  Sex: Female

DRUGS (1)
  1. GLY-OXIDE LIQUID [Suspect]
     Indication: DRUG USE FOR UNKNOWN INDICATION

REACTIONS (3)
  - DEMENTIA ALZHEIMER'S TYPE [None]
  - ILL-DEFINED DISORDER [None]
  - STOMATITIS [None]
